FAERS Safety Report 10252488 (Version 2)
Quarter: 2014Q2

REPORT INFORMATION
  Report Type: Report from Study
  Country: US (occurrence: US)
  Receive Date: 20140623
  Receipt Date: 20140623
  Transmission Date: 20141212
  Serious: Yes (Other)
  Sender: FDA-Public Use
  Company Number: US-ABBVIE-14P-163-1244540-00

PATIENT
  Age: 62 Year
  Sex: Female
  Weight: 106.69 kg

DRUGS (16)
  1. HUMIRA [Suspect]
     Indication: RHEUMATOID ARTHRITIS
     Dates: start: 20130326
  2. JANUMET [Concomitant]
     Indication: DIABETES MELLITUS
  3. ATENOLOL [Concomitant]
     Indication: HYPERTENSION
  4. ZOCOR [Concomitant]
     Indication: BLOOD CHOLESTEROL
  5. LISINOPRIL [Concomitant]
     Indication: PRODUCT USED FOR UNKNOWN INDICATION
  6. GLYBURIDE [Concomitant]
     Indication: PRODUCT USED FOR UNKNOWN INDICATION
  7. OXYCODONE [Concomitant]
     Indication: ARTHRALGIA
  8. PREDNISONE [Concomitant]
     Indication: PRODUCT USED FOR UNKNOWN INDICATION
     Dosage: TAPERING
  9. AMBIEN [Concomitant]
     Indication: INSOMNIA
  10. SIMVASTATIN [Concomitant]
     Indication: BLOOD CHOLESTEROL INCREASED
     Dates: start: 2011
  11. ATENOLOL [Concomitant]
     Indication: HYPERTENSION
  12. GLIMEPIRIDE [Concomitant]
     Indication: PRODUCT USED FOR UNKNOWN INDICATION
  13. ENDOCET [Concomitant]
     Indication: PRODUCT USED FOR UNKNOWN INDICATION
  14. LISINOPRIL [Concomitant]
     Indication: PRODUCT USED FOR UNKNOWN INDICATION
  15. TRAMADOL [Concomitant]
     Indication: PAIN
  16. OXYCODONE [Concomitant]
     Indication: PAIN

REACTIONS (10)
  - Arthralgia [Recovering/Resolving]
  - Rheumatoid arthritis [Not Recovered/Not Resolved]
  - Impaired healing [Unknown]
  - Mobility decreased [Unknown]
  - Wound [Unknown]
  - Impaired healing [Recovered/Resolved]
  - Musculoskeletal pain [Not Recovered/Not Resolved]
  - Pain in extremity [Not Recovered/Not Resolved]
  - Arthralgia [Not Recovered/Not Resolved]
  - Drug ineffective [Not Recovered/Not Resolved]
